FAERS Safety Report 4693343-8 (Version None)
Quarter: 2005Q2

REPORT INFORMATION
  Report Type: 
  Country: None (occurrence: None)
  Receive Date: 20050617
  Receipt Date: 20050606
  Transmission Date: 20051028
  Serious: Yes (Hospitalization)
  Sender: FDA-Public Use
  Company Number: US-MERCK-0506USA01098

PATIENT
  Age: 72 Year
  Sex: Female
  Weight: 70 kg

DRUGS (5)
  1. VIOXX [Suspect]
     Indication: ARTHRITIS
     Route: 048
     Dates: start: 19990901, end: 20020611
  2. SYNTHROID [Concomitant]
     Indication: THYROID DISORDER
     Route: 065
  3. PREVACID [Concomitant]
     Indication: GASTRIC DISORDER
     Route: 065
  4. CLARITIN-D [Concomitant]
     Indication: HYPERSENSITIVITY
     Route: 065
  5. TRANXENE [Concomitant]
     Indication: ANXIETY
     Route: 065

REACTIONS (1)
  - MYOCARDIAL INFARCTION [None]
